FAERS Safety Report 20598263 (Version 1)
Quarter: 2022Q1

REPORT INFORMATION
  Report Type: Spontaneous
  Country: ES (occurrence: ES)
  Receive Date: 20220315
  Receipt Date: 20220315
  Transmission Date: 20220423
  Serious: Yes (Other)
  Sender: FDA-Public Use
  Company Number: ES-BEH-2022142868

PATIENT
  Age: 6 Week
  Sex: Female

DRUGS (4)
  1. HUMAN IMMUNOGLOBULIN G [Suspect]
     Active Substance: HUMAN IMMUNOGLOBULIN G
     Indication: Kawasaki^s disease
     Dosage: 2 GRAM PER KILOGRAM
     Route: 042
  2. METHYLPREDNISOLONE [Concomitant]
     Active Substance: METHYLPREDNISOLONE
     Indication: Kawasaki^s disease
     Dosage: 30 MILLIGRAM/KILOGRAM, QD
     Route: 042
  3. ANAKINRA [Concomitant]
     Active Substance: ANAKINRA
     Indication: Kawasaki^s disease
     Dosage: 4 MILLIGRAM/KILOGRAM, QD
     Route: 065
  4. ANAKINRA [Concomitant]
     Active Substance: ANAKINRA
     Dosage: 2 MILLIGRAM/KILOGRAM, QD
     Route: 058

REACTIONS (2)
  - Drug ineffective [Unknown]
  - Off label use [Unknown]
